FAERS Safety Report 10512639 (Version 2)
Quarter: 2014Q4

REPORT INFORMATION
  Report Type: Spontaneous
  Country: US (occurrence: US)
  Receive Date: 20141012
  Receipt Date: 20141014
  Transmission Date: 20150528
  Serious: No
  Sender: FDA-Public Use
  Company Number: US-009507513-1409USA006665

PATIENT
  Sex: Female
  Weight: 48.73 kg

DRUGS (1)
  1. IMPLANON [Suspect]
     Active Substance: ETONOGESTREL
     Indication: CONTRACEPTION
     Dosage: UNK
     Route: 059
     Dates: start: 2011

REACTIONS (2)
  - Haemorrhage [Not Recovered/Not Resolved]
  - Medical device complication [Not Recovered/Not Resolved]
